FAERS Safety Report 5242256-1 (Version None)
Quarter: 2007Q1

REPORT INFORMATION
  Report Type: 
  Country: None (occurrence: None)
  Receive Date: 20070216
  Receipt Date: 20070216
  Transmission Date: 20070707
  Serious: Yes (Life-Threatening, Hospitalization)
  Sender: FDA-Public Use
  Company Number: None

PATIENT
  Age: 14 Year
  Sex: Female
  Weight: 53.5 kg

DRUGS (2)
  1. STRATTERA [Suspect]
     Indication: ATTENTION DEFICIT/HYPERACTIVITY DISORDER
     Dosage: 80MG  DAILY  PO
     Route: 048
  2. SEASONALE [Concomitant]

REACTIONS (6)
  - ABNORMAL BEHAVIOUR [None]
  - DEPRESSED LEVEL OF CONSCIOUSNESS [None]
  - FAMILY STRESS [None]
  - INCORRECT DOSE ADMINISTERED [None]
  - SLEEP DISORDER [None]
  - SUICIDE ATTEMPT [None]
